FAERS Safety Report 11074137 (Version 1)
Quarter: 2015Q2

REPORT INFORMATION
  Report Type: Spontaneous
  Country: US (occurrence: None)
  Receive Date: 20150428
  Receipt Date: 20150428
  Transmission Date: 20150821
  Serious: Yes (Other)
  Sender: FDA-Public Use
  Company Number: None

PATIENT
  Age: 84 Year
  Sex: Female
  Weight: 47.63 kg

DRUGS (1)
  1. LEVAQUIN [Suspect]
     Active Substance: LEVOFLOXACIN
     Indication: URINARY TRACT INFECTION
     Dosage: 20 TABLET BY MOUTH
     Route: 048
     Dates: start: 20150211, end: 20150218

REACTIONS (5)
  - Abasia [None]
  - Tendon rupture [None]
  - Pain [None]
  - Limb injury [None]
  - Skin discolouration [None]

NARRATIVE: CASE EVENT DATE: 20150209
